FAERS Safety Report 13530597 (Version 2)
Quarter: 2017Q2

REPORT INFORMATION
  Report Type: Report from Study
  Country: RU (occurrence: RU)
  Receive Date: 20170510
  Receipt Date: 20170524
  Transmission Date: 20170830
  Serious: Yes (Hospitalization, Other)
  Sender: FDA-Public Use
  Company Number: RU-BRISTOL-MYERS SQUIBB COMPANY-BMS-2017-034559

PATIENT
  Age: 67 Year
  Sex: Male
  Weight: 73 kg

DRUGS (4)
  1. ALLAPININ                          /00030002/ [Concomitant]
     Indication: ATRIAL FIBRILLATION
     Dosage: 50 MG, UNK
     Route: 048
     Dates: start: 201605, end: 20170131
  2. APIXABAN [Suspect]
     Active Substance: APIXABAN
     Indication: CEREBROVASCULAR ACCIDENT PROPHYLAXIS
     Dosage: 5 MG, BID
     Route: 065
     Dates: start: 20160427, end: 20170126
  3. LORISTA [Concomitant]
     Active Substance: LOSARTAN POTASSIUM
     Indication: ESSENTIAL HYPERTENSION
     Dosage: 25 MG, UNK
     Route: 048
     Dates: start: 201605
  4. CONCOR [Concomitant]
     Active Substance: BISOPROLOL FUMARATE
     Indication: ATRIAL FIBRILLATION
     Dosage: 2.5 MG, UNK
     Route: 048
     Dates: start: 201605, end: 20170131

REACTIONS (2)
  - High frequency ablation [Unknown]
  - Ischaemic stroke [Recovered/Resolved]

NARRATIVE: CASE EVENT DATE: 20170127
